FAERS Safety Report 10038211 (Version 1)
Quarter: 2014Q1

REPORT INFORMATION
  Report Type: Spontaneous
  Country: US (occurrence: None)
  Receive Date: 20140306
  Receipt Date: 20140306
  Transmission Date: 20141002
  Serious: Yes (Hospitalization)
  Sender: FDA-Public Use
  Company Number: 163-21880-12123261

PATIENT
  Age: 52 Year
  Sex: Female
  Weight: 60.78 kg

DRUGS (10)
  1. REVLIMID (LENALIDOMIDE) (5 MILLIGRAM, CAPSULES) [Suspect]
     Indication: PLASMA CELL MYELOMA
     Route: 048
     Dates: start: 20121127
  2. CYMBALTA [Concomitant]
  3. DEXAMETHASONE [Concomitant]
  4. FENTANYL [Concomitant]
  5. OXYCODONE HCL (OXYCODONE HYDROCHLORIDE) [Concomitant]
  6. SYNTHROID (LEVOTHYROXINE SODIUM) [Concomitant]
  7. VELCADE (BORTEZOMIB) [Concomitant]
  8. GABAPENTIN [Concomitant]
  9. METHADONE [Concomitant]
  10. VENLAFAXINE [Concomitant]

REACTIONS (11)
  - Pneumonia [None]
  - Insomnia [None]
  - Contusion [None]
  - Blister [None]
  - Vomiting [None]
  - Diarrhoea [None]
  - Constipation [None]
  - Urinary tract infection [None]
  - Pain [None]
  - Sinusitis [None]
  - Plasma cell myeloma [None]
